FAERS Safety Report 9431536 (Version 1)
Quarter: 2013Q3

REPORT INFORMATION
  Report Type: Spontaneous
  Country: US (occurrence: US)
  Receive Date: 20130731
  Receipt Date: 20130731
  Transmission Date: 20140515
  Serious: Yes (Other)
  Sender: FDA-Public Use
  Company Number: US-AMGEN-USASP2013052836

PATIENT
  Sex: Female

DRUGS (1)
  1. ENBREL [Suspect]
     Indication: MIGRAINE
     Dosage: 25 MG, Q2WK, PERI-SPINALLY
     Dates: start: 201304

REACTIONS (3)
  - Incorrect route of drug administration [Unknown]
  - Off label use [Unknown]
  - Feeling of relaxation [Not Recovered/Not Resolved]
